FAERS Safety Report 8278001-5 (Version None)
Quarter: 2012Q2

REPORT INFORMATION
  Report Type: 
  Country: None (occurrence: None)
  Receive Date: 20120412
  Receipt Date: 20120405
  Transmission Date: 20120825
  Serious: Yes (Hospitalization)
  Sender: FDA-Public Use
  Company Number: GB-PFIZER INC-2012075629

PATIENT
  Age: 71 Year
  Sex: Female

DRUGS (5)
  1. BUMETANIDE [Suspect]
     Dosage: UNK
  2. CLOPIDOGREL [Concomitant]
     Dosage: UNK
     Dates: start: 20110824, end: 20110824
  3. RAMIPRIL [Suspect]
     Dosage: UNK
  4. ACETYLSALICYLIC ACID [Concomitant]
  5. SPIRONOLACTONE [Suspect]
     Dosage: UNK

REACTIONS (1)
  - RENAL FAILURE ACUTE [None]
